FAERS Safety Report 7627884-8 (Version None)
Quarter: 2011Q3

REPORT INFORMATION
  Report Type: 
  Country: None (occurrence: None)
  Receive Date: 20110721
  Receipt Date: 20110708
  Transmission Date: 20111222
  Serious: Yes (Hospitalization)
  Sender: FDA-Public Use
  Company Number: KR-AMGEN-KORSP2011035739

PATIENT
  Age: 63 Year
  Sex: Female

DRUGS (1)
  1. CINACALCET HYDROCHLORIDE [Suspect]
     Indication: HYPERPARATHYROIDISM
     Dosage: UNK
     Route: 048

REACTIONS (2)
  - INFECTIOUS PERITONITIS [None]
  - WRONG TECHNIQUE IN DRUG USAGE PROCESS [None]
